FAERS Safety Report 8221045-X (Version None)
Quarter: 2012Q1

REPORT INFORMATION
  Report Type: 
  Country: None (occurrence: None)
  Receive Date: 20120320
  Receipt Date: 20120316
  Transmission Date: 20120608
  Serious: Yes (Death, Hospitalization)
  Sender: FDA-Public Use
  Company Number: FR-SANOFI-AVENTIS-2012SA017991

PATIENT
  Age: 79 Year
  Sex: Female

DRUGS (5)
  1. OMEPRAZOLE [Concomitant]
  2. ACETAMINOPHEN [Concomitant]
     Route: 048
     Dates: start: 20111214, end: 20111228
  3. NEXIUM [Concomitant]
     Route: 048
     Dates: start: 20111214, end: 20111228
  4. HEPARIN SODIUM [Suspect]
     Route: 042
     Dates: start: 20111214, end: 20111214
  5. LOVENOX [Suspect]
     Route: 058
     Dates: start: 20111214, end: 20111223

REACTIONS (2)
  - THROMBOSIS [None]
  - THROMBOCYTOPENIA [None]
